FAERS Safety Report 6099650-9 (Version None)
Quarter: 2009Q1

REPORT INFORMATION
  Report Type: 
  Country: None (occurrence: None)
  Receive Date: 20090303
  Receipt Date: 20090217
  Transmission Date: 20090719
  Serious: Yes (Death, Hospitalization, Other)
  Sender: FDA-Public Use
  Company Number: US-ROCHE-574546

PATIENT
  Sex: Female
  Weight: 79.4 kg

DRUGS (4)
  1. CAPECITABINE [Suspect]
     Indication: BLADDER CANCER
     Route: 048
     Dates: start: 20080604, end: 20080705
  2. CAPECITABINE [Suspect]
     Dosage: DOSAGE REDUCTION TO 25%.
     Route: 048
  3. COMPAZINE [Concomitant]
  4. IMODIUM [Concomitant]

REACTIONS (6)
  - BILE DUCT OBSTRUCTION [None]
  - DIVERTICULUM [None]
  - GALLBLADDER CANCER [None]
  - GALLBLADDER CANCER METASTATIC [None]
  - PALMAR-PLANTAR ERYTHRODYSAESTHESIA SYNDROME [None]
  - RECTAL HAEMORRHAGE [None]
